FAERS Safety Report 7708329-6 (Version None)
Quarter: 2011Q3

REPORT INFORMATION
  Report Type: 
  Country: None (occurrence: None)
  Receive Date: 20110825
  Receipt Date: 20110819
  Transmission Date: 20111222
  Serious: No
  Sender: FDA-Public Use
  Company Number: US-BIOGENIDEC-2011BI031864

PATIENT
  Sex: Female

DRUGS (2)
  1. AVONEX [Suspect]
     Indication: MULTIPLE SCLEROSIS
     Route: 030
     Dates: start: 20100711
  2. AVONEX [Suspect]
     Route: 030
     Dates: start: 20021101

REACTIONS (6)
  - MUSCLE SPASMS [None]
  - BALANCE DISORDER [None]
  - DEPRESSION [None]
  - PERIPHERAL NERVE LESION [None]
  - PAIN IN EXTREMITY [None]
  - FATIGUE [None]
